FAERS Safety Report 20109048 (Version 2)
Quarter: 2025Q3

REPORT INFORMATION
  Report Type: Spontaneous
  Country: EU (occurrence: EU)
  Receive Date: 20211124
  Receipt Date: 20250821
  Transmission Date: 20251021
  Serious: Yes (Other)
  Sender: MYLAN
  Company Number: EU-002147023-NVSC2021DE207940

PATIENT
  Age: 52 Year
  Sex: Female

DRUGS (4)
  1. TACROLIMUS [Suspect]
     Active Substance: TACROLIMUS
     Indication: Product used for unknown indication
  2. CYCLOSPORINE [Suspect]
     Active Substance: CYCLOSPORINE
     Indication: Graft versus host disease
  3. PREDNISOLONE [Suspect]
     Active Substance: PREDNISOLONE
     Indication: Graft versus host disease
  4. RUXOLITINIB [Suspect]
     Active Substance: RUXOLITINIB
     Indication: Myelofibrosis

REACTIONS (11)
  - Graft versus host disease in gastrointestinal tract [Unknown]
  - Diarrhoea [Unknown]
  - Abdominal pain [Unknown]
  - Gastrointestinal ulcer [Unknown]
  - Nausea [Unknown]
  - Chills [Unknown]
  - Taste disorder [Unknown]
  - Rash [Unknown]
  - Pyrexia [Unknown]
  - Splenomegaly [Unknown]
  - Off label use [Unknown]
